FAERS Safety Report 9549066 (Version 1)
Quarter: 2013Q3

REPORT INFORMATION
  Report Type: Spontaneous
  Country: US (occurrence: None)
  Receive Date: 20130923
  Receipt Date: 20130923
  Transmission Date: 20140515
  Serious: Yes (Life-Threatening, Hospitalization)
  Sender: FDA-Public Use
  Company Number: None

PATIENT
  Age: 47 Year
  Sex: Female
  Weight: 81.65 kg

DRUGS (1)
  1. JUNEL [Suspect]
     Indication: MENOPAUSE
     Dosage: 1 PILL
     Route: 048
     Dates: start: 20130412, end: 20130916

REACTIONS (1)
  - Pulmonary embolism [None]
